FAERS Safety Report 8541576-2 (Version None)
Quarter: 2012Q3

REPORT INFORMATION
  Report Type: 
  Country: None (occurrence: None)
  Receive Date: 20120726
  Receipt Date: 20120723
  Transmission Date: 20120928
  Serious: Yes (Disabling)
  Sender: FDA-Public Use
  Company Number: DE-ROCHE-1069569

PATIENT
  Sex: Male
  Weight: 75.6 kg

DRUGS (5)
  1. MABTHERA [Suspect]
     Dosage: DATE OF LAST DOSE PRIOR TO SAE: 07/MAR/2012
     Route: 042
     Dates: start: 20110121, end: 20120308
  2. MABTHERA [Suspect]
     Indication: MALIGNANT LYMPHOID NEOPLASM
     Route: 042
     Dates: start: 20100316
  3. BENDAMUSTINE [Suspect]
     Dates: start: 20100909
  4. BENDAMUSTINE [Suspect]
     Indication: MALIGNANT LYMPHOID NEOPLASM
     Dosage: LAST DOSE PRIOR TO SAE: 10/SEP/2010
     Route: 042
     Dates: start: 20100322
  5. MABTHERA [Suspect]
     Dates: start: 20120620

REACTIONS (2)
  - GINGIVITIS [None]
  - TOOTH EXTRACTION [None]
